FAERS Safety Report 9157405 (Version 2)
Quarter: 2013Q2

REPORT INFORMATION
  Report Type: Spontaneous
  Country: US (occurrence: US)
  Receive Date: 20130312
  Receipt Date: 20130501
  Transmission Date: 20140414
  Serious: No
  Sender: FDA-Public Use
  Company Number: US-B.I. PHARMACEUTICALS,INC./RIDGEFIELD-2013-BI-06050BP

PATIENT
  Age: 62 Year
  Sex: Male

DRUGS (5)
  1. SPIRIVA [Suspect]
     Indication: CHRONIC OBSTRUCTIVE PULMONARY DISEASE
     Dosage: 18 MCG
     Route: 055
     Dates: start: 2010
  2. SYMBICORT [Concomitant]
     Route: 055
  3. WARFARIN [Concomitant]
     Route: 048
  4. TRAMADOL [Concomitant]
     Route: 048
  5. SINGULAIR [Concomitant]
     Route: 048

REACTIONS (2)
  - Pneumonia [Recovered/Resolved]
  - Product quality issue [Unknown]
